FAERS Safety Report 9063022 (Version 1)
Quarter: 2013Q1

REPORT INFORMATION
  Report Type: Spontaneous
  Country: ES (occurrence: ES)
  Receive Date: 20130213
  Receipt Date: 20130213
  Transmission Date: 20140127
  Serious: Yes (Other)
  Sender: FDA-Public Use
  Company Number: ES-UCBSA-077864

PATIENT
  Age: 17 Year
  Sex: Male
  Weight: 62 kg

DRUGS (2)
  1. KEPPRA [Suspect]
     Indication: EPILEPSY
     Dosage: DAILY DOSE: 3500 MG
     Route: 048
     Dates: start: 201203
  2. KEPPRA [Suspect]
     Indication: EPILEPSY
     Dosage: 500/1000 MG DAILY
     Route: 048

REACTIONS (1)
  - Ejaculation failure [Not Recovered/Not Resolved]
